FAERS Safety Report 5397156-3 (Version None)
Quarter: 2007Q3

REPORT INFORMATION
  Report Type: 
  Country: None (occurrence: None)
  Receive Date: 20070725
  Receipt Date: 20070716
  Transmission Date: 20080115
  Serious: Yes (Other)
  Sender: FDA-Public Use
  Company Number: US-PFIZER INC-2007058786

PATIENT
  Sex: Female

DRUGS (3)
  1. GENOTROPIN [Suspect]
     Indication: HYPOPITUITARISM
     Dates: start: 20050401, end: 20070625
  2. CYTOMEL [Concomitant]
  3. SYNTHROID [Concomitant]

REACTIONS (2)
  - HAND REPAIR OPERATION [None]
  - MUSCLE SPASMS [None]
